FAERS Safety Report 4468011-8 (Version None)
Quarter: 2004Q4

REPORT INFORMATION
  Report Type: 
  Country: None (occurrence: None)
  Receive Date: 20041004
  Receipt Date: 20040921
  Transmission Date: 20050328
  Serious: Yes (Life-Threatening, Disabling, Other)
  Sender: FDA-Public Use
  Company Number: 2004234790DE

PATIENT
  Age: 56 Year
  Sex: Female

DRUGS (1)
  1. BEXTRA [Suspect]
     Indication: OSTEOARTHRITIS
     Dosage: 20 MG, PRN, ORAL
     Route: 048
     Dates: start: 20040901, end: 20040921

REACTIONS (1)
  - STEVENS-JOHNSON SYNDROME [None]
